FAERS Safety Report 6063970 (Version 2)
Quarter: 2020Q3

REPORT INFORMATION
  Report Type: Report from Study
  Country: GB (occurrence: GB)
  Receive Date: 20060613
  Receipt Date: 20080718
  Transmission Date: 20201104
  Serious: Yes (Hospitalization)
  Sender: FDA-Public Use
  Company Number: GB-ROCHE-418662

PATIENT
  Age: 73 Year
  Sex: Female
  Weight: 50.3 kg

DRUGS (12)
  1. IBANDRONIC ACID. [Suspect]
     Active Substance: IBANDRONIC ACID
     Indication: OSTEOPOROSIS POSTMENOPAUSAL
     Dosage: DOSAGE FORM REPORTED: INJECTION
     Route: 042
     Dates: start: 20050217
  2. WARFARIN SODIUM. [Suspect]
     Active Substance: WARFARIN SODIUM
     Indication: PRODUCT USED FOR UNKNOWN INDICATION
     Dosage: DRUG TAKEN AS PER INR
     Route: 065
  3. LISINOPRIL. [Concomitant]
     Active Substance: LISINOPRIL
     Dates: start: 20041025
  4. SIMVASTATIN. [Concomitant]
     Active Substance: SIMVASTATIN
     Dates: start: 20040526
  5. PROCHLORPERAZINE. [Concomitant]
     Active Substance: PROCHLORPERAZINE
  6. .ALPHA.?TOCOPHEROL\ADENOSINE PHOSPHATE\ASCORBIC ACID\CALCIUM PANTOTHENATE\CYANOCOBALAMIN\FOLIC ACID [Concomitant]
  7. TEMAZEPAM. [Concomitant]
     Active Substance: TEMAZEPAM
  8. GLIMEPIRIDE. [Concomitant]
     Active Substance: GLIMEPIRIDE
     Dates: start: 20041123
  9. IBANDRONIC ACID. [Suspect]
     Active Substance: IBANDRONIC ACID
     Indication: OSTEOPOROSIS POSTMENOPAUSAL
     Dosage: DOSE, ROUTE AND FREQUENCY BLINDED. PATIENT ENROLLED IN BM16550.
     Route: 065
  10. DIGOXIN. [Concomitant]
     Active Substance: DIGOXIN
  11. FRUSEMIDE [Concomitant]
     Active Substance: FUROSEMIDE
  12. AMITRIPTYLINE [Concomitant]
     Active Substance: AMITRIPTYLINE

REACTIONS (1)
  - Gastrointestinal haemorrhage [Recovered/Resolved]

NARRATIVE: CASE EVENT DATE: 20050919
